FAERS Safety Report 8403493-8 (Version None)
Quarter: 2012Q2

REPORT INFORMATION
  Report Type: 
  Country: None (occurrence: None)
  Receive Date: 20120601
  Receipt Date: 20120525
  Transmission Date: 20120825
  Serious: Yes (Hospitalization)
  Sender: FDA-Public Use
  Company Number: US-INCYTE CORPORATION-2012IN000169

PATIENT
  Sex: Male
  Weight: 75 kg

DRUGS (2)
  1. JAKAFI [Suspect]
     Indication: MYELOFIBROSIS
     Dosage: 25 MG, BID
     Dates: start: 20111213
  2. JAKAFI [Suspect]
     Dosage: 15 MG, BID
     Route: 048

REACTIONS (2)
  - HERPES ZOSTER MULTI-DERMATOMAL [None]
  - STAPHYLOCOCCAL INFECTION [None]
